FAERS Safety Report 14012936 (Version 1)
Quarter: 2017Q3

REPORT INFORMATION
  Report Type: Spontaneous
  Country: US (occurrence: US)
  Receive Date: 20170926
  Receipt Date: 20170926
  Transmission Date: 20171128
  Serious: No
  Sender: FDA-Public Use
  Company Number: US-GLAXOSMITHKLINE-US2017GSK148310

PATIENT
  Sex: Female

DRUGS (2)
  1. FLOLAN DILUENT SOLUTION FOR INJECTION [Suspect]
     Active Substance: GLYCINE\MANNITOL\SODIUM CHLORIDE
     Indication: PULMONARY HYPERTENSION
     Dosage: UNK
  2. FLOLAN [Suspect]
     Active Substance: EPOPROSTENOL SODIUM
     Indication: PULMONARY HYPERTENSION
     Dosage: 49 NG/KG/MIN CONTINUOUS
     Route: 042
     Dates: start: 19991105

REACTIONS (3)
  - Hypersensitivity [Unknown]
  - Dermatitis allergic [Unknown]
  - Catheter site related reaction [Unknown]
